FAERS Safety Report 4927803-9 (Version None)
Quarter: 2006Q1

REPORT INFORMATION
  Report Type: 
  Country: None (occurrence: None)
  Receive Date: 20060228
  Receipt Date: 20051213
  Transmission Date: 20060701
  Serious: Yes (Death)
  Sender: FDA-Public Use
  Company Number: US-BRISTOL-MYERS SQUIBB COMPANY-13214978

PATIENT
  Age: 65 Year
  Sex: Male

DRUGS (4)
  1. BARACLUDE [Suspect]
     Indication: HEPATITIS B
     Route: 048
     Dates: start: 20050711, end: 20051208
  2. LASIX [Concomitant]
  3. AMILORIDE HCL [Concomitant]
  4. LACTULONA [Concomitant]

REACTIONS (1)
  - GRAFT DYSFUNCTION [None]
